FAERS Safety Report 6284129-1 (Version None)
Quarter: 2009Q3

REPORT INFORMATION
  Report Type: 
  Country: None (occurrence: None)
  Receive Date: 20090723
  Receipt Date: 20090713
  Transmission Date: 20100115
  Serious: Yes (Other)
  Sender: FDA-Public Use
  Company Number: 8049016

PATIENT
  Age: 26 Year
  Sex: Female
  Weight: 143.2 kg

DRUGS (4)
  1. XYZAL [Suspect]
     Indication: SEASONAL ALLERGY
     Dosage: 5 MG 1/D PO
     Route: 048
     Dates: start: 20090624, end: 20090626
  2. DEPO-PROVERA [Concomitant]
  3. ASPIRIN [Concomitant]
  4. MULTI-VITAMIN [Concomitant]

REACTIONS (2)
  - GRAND MAL CONVULSION [None]
  - LOSS OF CONSCIOUSNESS [None]
